FAERS Safety Report 6706652-5 (Version None)
Quarter: 2010Q2

REPORT INFORMATION
  Report Type: 
  Country: None (occurrence: None)
  Receive Date: 20100503
  Receipt Date: 20100423
  Transmission Date: 20101027
  Serious: Yes (Other)
  Sender: FDA-Public Use
  Company Number: BR-ASTRAZENECA-2010SE18548

PATIENT
  Age: 57 Year
  Sex: Female
  Weight: 50 kg

DRUGS (3)
  1. ARIMIDEX [Suspect]
     Indication: BREAST CANCER METASTATIC
     Dosage: DAILY
     Route: 048
     Dates: start: 20090301
  2. FASLODEX [Suspect]
     Indication: BREAST CANCER METASTATIC
     Dosage: MONTHLY
     Route: 030
     Dates: start: 20040101, end: 20090101
  3. ZOMETA [Concomitant]
     Indication: BREAST CANCER
     Dates: start: 20040101, end: 20060101

REACTIONS (7)
  - DEVICE FAILURE [None]
  - GINGIVAL INFECTION [None]
  - LIP BLISTER [None]
  - LIP DRY [None]
  - LIP SWELLING [None]
  - METASTASES TO BONE [None]
  - TOOTH LOSS [None]
